FAERS Safety Report 17401263 (Version 1)
Quarter: 2020Q1

REPORT INFORMATION
  Report Type: Spontaneous
  Country: DE (occurrence: DE)
  Receive Date: 20200211
  Receipt Date: 20200211
  Transmission Date: 20200409
  Serious: Yes (Other)
  Sender: FDA-Public Use
  Company Number: NVSC2020DE034461

PATIENT
  Age: 16 Year
  Sex: Female

DRUGS (3)
  1. FLUOXETIN 10 - 1 A PHARMA [Suspect]
     Active Substance: FLUOXETINE HYDROCHLORIDE
     Indication: PRODUCT USED FOR UNKNOWN INDICATION
     Dosage: 20 MG, UNKNOWN
     Route: 065
  2. FLUOXETIN 10 - 1 A PHARMA [Suspect]
     Active Substance: FLUOXETINE HYDROCHLORIDE
     Dosage: 15 MG, UNKNOWN
     Route: 065
  3. FLUOXETIN 10 - 1 A PHARMA [Suspect]
     Active Substance: FLUOXETINE HYDROCHLORIDE
     Dosage: 10 MG, UNKNOWN
     Route: 065

REACTIONS (3)
  - Blood pressure fluctuation [Unknown]
  - Euphoric mood [Unknown]
  - Syncope [Unknown]
